FAERS Safety Report 8035575-7 (Version None)
Quarter: 2012Q1

REPORT INFORMATION
  Report Type: 
  Country: None (occurrence: None)
  Receive Date: 20120110
  Receipt Date: 20120110
  Transmission Date: 20120608
  Serious: No
  Sender: FDA-Public Use
  Company Number: None

PATIENT
  Age: 33 Year
  Sex: Male
  Weight: 74.8435 kg

DRUGS (2)
  1. LITHIUM CARBONATE [Suspect]
     Indication: POST-TRAUMATIC STRESS DISORDER
     Dosage: 300MG 2 X DAILY MOUTH
     Route: 048
     Dates: start: 20040501, end: 20110901
  2. LITHIUM CARBONATE [Suspect]
     Indication: AFFECTIVE DISORDER
     Dosage: 300MG 2 X DAILY MOUTH
     Route: 048
     Dates: start: 20040501, end: 20110901

REACTIONS (1)
  - BLOOD GLUCOSE ABNORMAL [None]
